FAERS Safety Report 4308670-3 (Version None)
Quarter: 2004Q1

REPORT INFORMATION
  Report Type: 
  Country: None (occurrence: None)
  Receive Date: 20040301
  Receipt Date: 20040301
  Transmission Date: 20041129
  Serious: No
  Sender: FDA-Public Use
  Company Number: None

PATIENT
  Age: 60 Year
  Sex: Male
  Weight: 74.8435 kg

DRUGS (1)
  1. ZICAM ZINCUM GLUMNIDUM 2X GUMTECH [Suspect]
     Dosage: 1 SPRAY 2 X A DAY NASAL
     Route: 045
     Dates: start: 20030910, end: 20030912

REACTIONS (1)
  - ANOSMIA [None]
